FAERS Safety Report 6161674-0 (Version None)
Quarter: 2009Q2

REPORT INFORMATION
  Report Type: 
  Country: None (occurrence: None)
  Receive Date: 20090421
  Receipt Date: 20090223
  Transmission Date: 20091009
  Serious: No
  Sender: FDA-Public Use
  Company Number: US-BAYER-200914700NA

PATIENT
  Age: 50 Year
  Sex: Female
  Weight: 59 kg

DRUGS (2)
  1. MAGNEVIST [Suspect]
     Indication: NUCLEAR MAGNETIC RESONANCE IMAGING
     Dosage: TOTAL DAILY DOSE: 12 ML  UNIT DOSE: 50 ML
     Route: 042
     Dates: start: 20090130, end: 20090130
  2. INHALER FOR ASTHMA TYPE NOT KNOWN [Concomitant]
     Indication: ASTHMA

REACTIONS (3)
  - DYSPNOEA [None]
  - NAUSEA [None]
  - WHEEZING [None]
